FAERS Safety Report 13387686 (Version 1)
Quarter: 2017Q1

REPORT INFORMATION
  Report Type: Spontaneous
  Country: CA (occurrence: CA)
  Receive Date: 20170330
  Receipt Date: 20170330
  Transmission Date: 20170429
  Serious: Yes (Hospitalization)
  Sender: FDA-Public Use
  Company Number: CA-ACTELION-A-US2016-145518

PATIENT
  Age: 71 Year
  Sex: Female

DRUGS (9)
  1. UPTRAVI [Suspect]
     Active Substance: SELEXIPAG
     Indication: PULMONARY ARTERIAL HYPERTENSION
     Dosage: 200 MCG, BID
     Route: 048
     Dates: start: 20161107
  2. VENTOLIN [Concomitant]
     Active Substance: ALBUTEROL SULFATE
  3. UPTRAVI [Suspect]
     Active Substance: SELEXIPAG
     Dosage: 200 MCG, EVERY SECOND DAY FOR 1 WEEK
     Route: 048
  4. LASIX [Concomitant]
     Active Substance: FUROSEMIDE
  5. ALDACTONE [Concomitant]
     Active Substance: SPIRONOLACTONE
  6. OPSUMIT [Concomitant]
     Active Substance: MACITENTAN
     Indication: INVESTIGATION
  7. POTASSIUM [Concomitant]
     Active Substance: POTASSIUM
  8. ADEMPAS [Concomitant]
     Active Substance: RIOCIGUAT
  9. PREVACID [Concomitant]
     Active Substance: LANSOPRAZOLE

REACTIONS (8)
  - Pain in jaw [Not Recovered/Not Resolved]
  - Diarrhoea [Not Recovered/Not Resolved]
  - Nausea [Not Recovered/Not Resolved]
  - Oxygen saturation decreased [Recovered/Resolved]
  - Blood potassium increased [Recovered/Resolved]
  - Vomiting [Not Recovered/Not Resolved]
  - Headache [Not Recovered/Not Resolved]
  - Angina pectoris [Recovered/Resolved]

NARRATIVE: CASE EVENT DATE: 20161107
